FAERS Safety Report 5649491-9 (Version None)
Quarter: 2008Q1

REPORT INFORMATION
  Report Type: 
  Country: None (occurrence: None)
  Receive Date: 20080304
  Receipt Date: 20080225
  Transmission Date: 20080703
  Serious: Yes (Death)
  Sender: FDA-Public Use
  Company Number: DE-ASTRAZENECA-2007SE03741

PATIENT
  Age: 25948 Day
  Sex: Male

DRUGS (9)
  1. CANDESARTAN CILEXETIL [Suspect]
     Indication: TYPE 2 DIABETES MELLITUS
     Route: 048
     Dates: start: 20021010
  2. INSULIN ACTRAPHANE [Concomitant]
  3. METFORMIN HCL [Concomitant]
  4. BELOC ZOK [Concomitant]
  5. ESIDRIX [Concomitant]
  6. CARMEN [Concomitant]
  7. PANCREATIN TRIPLE STRENGTH CAP [Concomitant]
  8. TESTOVIRON [Concomitant]
  9. SIMVASTATIN [Concomitant]

REACTIONS (1)
  - DEATH [None]
